FAERS Safety Report 16333251 (Version 2)
Quarter: 2019Q3

REPORT INFORMATION
  Report Type: Spontaneous
  Country: US (occurrence: US)
  Receive Date: 20190520
  Receipt Date: 20190829
  Transmission Date: 20191004
  Serious: Yes (Other)
  Sender: FDA-Public Use
  Company Number: PHEH2019US021542

PATIENT
  Age: 40 Year
  Sex: Female

DRUGS (1)
  1. ZOFRAN [Suspect]
     Active Substance: ONDANSETRON HYDROCHLORIDE
     Indication: PRODUCT USED FOR UNKNOWN INDICATION
     Route: 048

REACTIONS (9)
  - Anxiety [Unknown]
  - Pain [Unknown]
  - Product use issue [Unknown]
  - Gestational diabetes [Unknown]
  - Anhedonia [Unknown]
  - Maternal exposure during pregnancy [Unknown]
  - Injury [Unknown]
  - Gestational hypertension [Unknown]
  - Emotional distress [Unknown]
